FAERS Safety Report 6045152-5 (Version None)
Quarter: 2009Q1

REPORT INFORMATION
  Report Type: 
  Country: None (occurrence: None)
  Receive Date: 20090116
  Receipt Date: 20090116
  Transmission Date: 20090719
  Serious: No
  Sender: FDA-Public Use
  Company Number: None

PATIENT
  Age: 56 Year
  Sex: Male
  Weight: 113.3993 kg

DRUGS (2)
  1. CIPROFLOXACIN [Suspect]
     Indication: CYSTITIS
     Dosage: 1 TABLET 2X DAILY PO
     Route: 048
     Dates: start: 20081008, end: 20081013
  2. LEVOFLOXACIN [Suspect]
     Indication: CYSTITIS
     Dosage: 1 TABLET 2X DAILY PO
     Route: 048
     Dates: start: 20081014, end: 20081022

REACTIONS (2)
  - PAIN IN EXTREMITY [None]
  - TENDON RUPTURE [None]
